FAERS Safety Report 9962512 (Version 1)
Quarter: 2014Q1

REPORT INFORMATION
  Report Type: Report from Study
  Country: US (occurrence: US)
  Receive Date: 20140305
  Receipt Date: 20140305
  Transmission Date: 20141002
  Serious: No
  Sender: FDA-Public Use
  Company Number: US-ABBVIE-13P-163-1115473-00

PATIENT
  Sex: Female

DRUGS (7)
  1. HUMIRA [Suspect]
     Indication: CROHN^S DISEASE
     Route: 058
     Dates: start: 20130412
  2. LIALDA [Concomitant]
     Indication: CROHN^S DISEASE
     Dosage: 4 TO 8 MG DAILY
     Route: 048
  3. PREDNISONE [Concomitant]
     Indication: CROHN^S DISEASE
     Route: 048
  4. AZATHIOPRINE [Concomitant]
     Indication: CROHN^S DISEASE
     Route: 048
  5. VALACYCLOVIR [Concomitant]
     Indication: ANTIVIRAL PROPHYLAXIS
     Route: 048
  6. HYDROCODONE/TYLENOL [Concomitant]
     Indication: PAIN
     Dosage: 7.5/650 MG EVERY 6 TO 8 HOURS AS NEEDED
     Route: 048
  7. CLORAZEPATE [Concomitant]
     Indication: ANXIETY
     Dosage: TAKES 1/2 T AS NEEDED
     Route: 048

REACTIONS (1)
  - Injection site discolouration [Not Recovered/Not Resolved]
